FAERS Safety Report 13745387 (Version 1)
Quarter: 2017Q3

REPORT INFORMATION
  Report Type: Spontaneous
  Country: US (occurrence: US)
  Receive Date: 20170711
  Receipt Date: 20170711
  Transmission Date: 20171127
  Serious: No
  Sender: FDA-Public Use
  Company Number: None

PATIENT
  Age: 33 Year
  Sex: Female

DRUGS (1)
  1. HUMATROPE [Suspect]
     Active Substance: SOMATROPIN
     Indication: MALAISE
     Route: 058
     Dates: start: 20170216

REACTIONS (3)
  - Palpitations [None]
  - Accidental overdose [None]
  - Nightmare [None]

NARRATIVE: CASE EVENT DATE: 20170701
